FAERS Safety Report 11405299 (Version 1)
Quarter: 2015Q3

REPORT INFORMATION
  Report Type: Spontaneous
  Country: AR (occurrence: AR)
  Receive Date: 20150821
  Receipt Date: 20150821
  Transmission Date: 20151125
  Serious: Yes (Death, Hospitalization, Other)
  Sender: FDA-Public Use
  Company Number: AR-PFIZER INC-2015273765

PATIENT
  Age: 52 Year
  Sex: Male

DRUGS (1)
  1. AXITINIB [Suspect]
     Active Substance: AXITINIB
     Indication: RENAL CANCER
     Dosage: 5 MG, 2X/DAY
     Dates: start: 20140821

REACTIONS (11)
  - Headache [Unknown]
  - Blood creatinine increased [Unknown]
  - Constipation [Unknown]
  - Pain [Unknown]
  - General physical health deterioration [Unknown]
  - Spinal compression fracture [Unknown]
  - Pyrexia [Unknown]
  - Platelet count decreased [Unknown]
  - Sepsis [Fatal]
  - Paraparesis [Unknown]
  - Paraesthesia [Unknown]

NARRATIVE: CASE EVENT DATE: 20140929
